FAERS Safety Report 25833724 (Version 3)
Quarter: 2025Q4

REPORT INFORMATION
  Report Type: Report from Study
  Country: US (occurrence: US)
  Receive Date: 20250922
  Receipt Date: 20251020
  Transmission Date: 20260117
  Serious: No
  Sender: ABBVIE
  Company Number: US-ABBVIE-6385683

PATIENT
  Age: 68 Year
  Sex: Female

DRUGS (4)
  1. SKYRIZI [Suspect]
     Active Substance: RISANKIZUMAB-RZAA
     Indication: Crohn^s disease
     Dosage: FORM STRENGTH: 180 MG
     Route: 058
  2. IMODIUM [Concomitant]
     Active Substance: LOPERAMIDE HYDROCHLORIDE
     Indication: Product used for unknown indication
  3. SKYRIZI [Suspect]
     Active Substance: RISANKIZUMAB-RZAA
     Indication: Crohn^s disease
     Route: 042
     Dates: start: 202406
  4. IRON [Concomitant]
     Active Substance: IRON
     Indication: Anaemia

REACTIONS (19)
  - Frequent bowel movements [Not Recovered/Not Resolved]
  - Pharyngeal polyp [Recovered/Resolved]
  - Drug ineffective [Not Recovered/Not Resolved]
  - Flatulence [Unknown]
  - Anal incontinence [Unknown]
  - Nasopharyngitis [Recovering/Resolving]
  - Illness [Recovering/Resolving]
  - Dysphagia [Not Recovered/Not Resolved]
  - Foreign body in throat [Recovered/Resolved]
  - Productive cough [Not Recovered/Not Resolved]
  - Sinus disorder [Recovered/Resolved]
  - Crohn^s disease [Not Recovered/Not Resolved]
  - Haemorrhoids [Not Recovered/Not Resolved]
  - Paranasal sinus hypersecretion [Not Recovered/Not Resolved]
  - Irritability [Recovering/Resolving]
  - Respiratory tract congestion [Recovering/Resolving]
  - Inflammation [Unknown]
  - Ocular discomfort [Unknown]
  - Infection [Unknown]

NARRATIVE: CASE EVENT DATE: 20250101
